FAERS Safety Report 6429472-8 (Version None)
Quarter: 2009Q4

REPORT INFORMATION
  Report Type: 
  Country: None (occurrence: None)
  Receive Date: 20091102
  Receipt Date: 20091021
  Transmission Date: 20100525
  Serious: Yes (Other)
  Sender: FDA-Public Use
  Company Number: WAES 0910USA03030

PATIENT
  Sex: Female

DRUGS (2)
  1. FOSAMAX [Suspect]
     Indication: OSTEOPOROSIS
     Dosage: 70 MG/WKY/PO
     Route: 048
  2. INJ TERIPARATIDE UNK [Suspect]
     Indication: OSTEOPOROSIS
     Dosage: 20 MICROGM/DAILY/SC
     Route: 058

REACTIONS (1)
  - SPINAL FRACTURE [None]
